FAERS Safety Report 5317442-2 (Version None)
Quarter: 2007Q2

REPORT INFORMATION
  Report Type: 
  Country: None (occurrence: None)
  Receive Date: 20070507
  Receipt Date: 20070426
  Transmission Date: 20071010
  Serious: Yes (Life-Threatening, Hospitalization, Disabling)
  Sender: FDA-Public Use
  Company Number: GB-JNJFOC-20070406129

PATIENT
  Age: 33 Year
  Sex: Female
  Weight: 91 kg

DRUGS (5)
  1. REMICADE [Suspect]
     Indication: CROHN'S DISEASE
     Route: 042
  2. CITALOPRAM HYDROBROMIDE [Concomitant]
     Route: 048
  3. METHOTREXATE [Concomitant]
     Route: 030
  4. PREDNISOLONE [Concomitant]
     Route: 048
  5. PROCHLORPERAZINE [Concomitant]
     Route: 048

REACTIONS (6)
  - ASTHENIA [None]
  - DEMYELINATION [None]
  - DRUG INEFFECTIVE [None]
  - GRAND MAL CONVULSION [None]
  - OPTIC NEURITIS [None]
  - VISION BLURRED [None]
